FAERS Safety Report 8837463 (Version 4)
Quarter: 2012Q4

REPORT INFORMATION
  Report Type: 
  Country: US (occurrence: US)
  Receive Date: 20121012
  Receipt Date: 20121228
  Transmission Date: 20130627
  Serious: Yes (Other)
  Sender: FDA-Public Use
  Company Number: US-MYLANLABS-2012S1020005

PATIENT
  Age: 70 Year
  Sex: Male
  Weight: 78.47 kg

DRUGS (7)
  1. MORPHINE SULFATE [Suspect]
     Indication: BACK PAIN
     Route: 048
     Dates: start: 20120912, end: 20121009
  2. MORPHINE SULFATE [Suspect]
     Indication: PAIN
     Route: 048
     Dates: start: 20120912, end: 20121009
  3. MORPHINE SULFATE [Suspect]
     Indication: BACK PAIN
     Route: 048
     Dates: start: 20120912, end: 20121009
  4. MORPHINE SULFATE [Suspect]
     Indication: NECK PAIN
     Route: 048
     Dates: start: 20120912, end: 20121009
  5. PERCOCET [Concomitant]
     Indication: BREAKTHROUGH PAIN
     Route: 048
  6. BACLOFEN [Concomitant]
     Indication: MUSCLE SPASMS
  7. HYPNOTICS AND SEDATIVES [Concomitant]
     Indication: INSOMNIA
     Dosage: ^Some sleeping med^

REACTIONS (7)
  - Drug effect decreased [Recovered/Resolved]
  - Dependence [Not Recovered/Not Resolved]
  - Suicidal ideation [Not Recovered/Not Resolved]
  - Back pain [Recovered/Resolved]
  - Pain [Recovered/Resolved]
  - Insomnia [Not Recovered/Not Resolved]
  - Depression [Not Recovered/Not Resolved]
